FAERS Safety Report 7522307-1 (Version None)
Quarter: 2011Q2

REPORT INFORMATION
  Report Type: 
  Country: None (occurrence: None)
  Receive Date: 20110603
  Receipt Date: 20110524
  Transmission Date: 20111010
  Serious: Yes (Other)
  Sender: FDA-Public Use
  Company Number: PHHY2011CH45043

PATIENT
  Age: 69 Year
  Sex: Male

DRUGS (4)
  1. RITALIN [Suspect]
     Indication: DEPRESSION
     Dosage: 20 TO 40 MG DAILY DOSE
  2. RITALIN [Suspect]
     Dosage: 200 MG, QD
  3. LEXOTANIL [Concomitant]
     Indication: DEPRESSION
     Dosage: 9 MG, QD
  4. REMERON [Concomitant]
     Indication: DEPRESSION
     Dosage: UNK UKN, UNK

REACTIONS (2)
  - SLEEP DISORDER [None]
  - INTENTIONAL DRUG MISUSE [None]
